FAERS Safety Report 4914052-3 (Version None)
Quarter: 2006Q1

REPORT INFORMATION
  Report Type: 
  Country: None (occurrence: None)
  Receive Date: 20060203
  Receipt Date: 20060123
  Transmission Date: 20060701
  Serious: Yes (Disabling, Other)
  Sender: FDA-Public Use
  Company Number: 2006BH001252

PATIENT
  Age: 55 Year
  Sex: Male

DRUGS (1)
  1. IGIV GENERIC (IMMUNOGLOBULIN HUMAN NORMAL) [Suspect]
     Indication: GUILLAIN-BARRE SYNDROME
     Dosage: 400 MG/KG/EVERY DAY;IV
     Route: 042

REACTIONS (2)
  - ISCHAEMIC CEREBRAL INFARCTION [None]
  - RED BLOOD CELL SEDIMENTATION RATE INCREASED [None]
